FAERS Safety Report 7678369-4 (Version None)
Quarter: 2011Q3

REPORT INFORMATION
  Report Type: 
  Country: None (occurrence: None)
  Receive Date: 20110811
  Receipt Date: 20110809
  Transmission Date: 20111222
  Serious: Yes (Hospitalization, Disabling)
  Sender: FDA-Public Use
  Company Number: DK-ABBOTT-09P-044-0565919-00

PATIENT
  Sex: Female
  Weight: 53 kg

DRUGS (6)
  1. HUMIRA [Suspect]
     Dates: start: 20090216, end: 20090303
  2. HUMIRA [Suspect]
     Indication: ARTHRITIS
     Dates: start: 20090209
  3. IMURAN [Concomitant]
     Indication: CROHN'S DISEASE
     Route: 048
  4. HUMIRA [Suspect]
     Dates: start: 20070701, end: 20071101
  5. HUMIRA [Suspect]
     Indication: CROHN'S DISEASE
     Dates: start: 20090216, end: 20090303
  6. IMURAN [Concomitant]
     Indication: COLITIS ULCERATIVE

REACTIONS (11)
  - SENSORY DISTURBANCE [None]
  - ASTHENIA [None]
  - DIZZINESS [None]
  - COUGH [None]
  - MEMORY IMPAIRMENT [None]
  - PARAESTHESIA [None]
  - DEMYELINATION [None]
  - FATIGUE [None]
  - DYSPNOEA [None]
  - LIMB DISCOMFORT [None]
  - EYE PAIN [None]
